FAERS Safety Report 8267962-6 (Version None)
Quarter: 2012Q2

REPORT INFORMATION
  Report Type: 
  Country: None (occurrence: None)
  Receive Date: 20120409
  Receipt Date: 20120404
  Transmission Date: 20120825
  Serious: Yes (Death)
  Sender: FDA-Public Use
  Company Number: PHHY2012CA007081

PATIENT
  Sex: Female

DRUGS (7)
  1. ASPIRIN [Concomitant]
     Dosage: 325 MG, UNK
  2. OXAZEPAM [Concomitant]
     Dosage: 7.5 MG, UNK
  3. SERTRALINE HYDROCHLORIDE [Concomitant]
     Dosage: 25 MG, UNK
  4. FUROSEMIDE [Concomitant]
     Dosage: 40 MG, BID
  5. CLOZARIL [Suspect]
     Indication: BIPOLAR DISORDER
     Dosage: 25 MG, UNK
     Dates: start: 20020606
  6. ARICEPT [Concomitant]
     Dosage: 10 MG, UNK
  7. CISAPRIDE [Concomitant]
     Dosage: UNK UKN, UNK

REACTIONS (2)
  - PNEUMONIA [None]
  - MYOCARDIAL INFARCTION [None]
